FAERS Safety Report 6185539-3 (Version None)
Quarter: 2009Q2

REPORT INFORMATION
  Report Type: 
  Country: None (occurrence: None)
  Receive Date: 20090507
  Receipt Date: 20090423
  Transmission Date: 20091009
  Serious: Yes (Other)
  Sender: FDA-Public Use
  Company Number: 2009-195542-NL

PATIENT
  Age: 27 Year
  Sex: Female

DRUGS (1)
  1. NUVARING [Suspect]
     Indication: CONTRACEPTION
     Dosage: 3 WEEKS IN; 1 WEEK OUT

REACTIONS (6)
  - ARTERIAL THROMBOSIS [None]
  - CEREBROVASCULAR ACCIDENT [None]
  - COAGULOPATHY [None]
  - EMBOLISM [None]
  - EMBOLISM VENOUS [None]
  - VENOUS THROMBOSIS [None]
